FAERS Safety Report 9104162 (Version 2)
Quarter: 2013Q3

REPORT INFORMATION
  Report Type: Spontaneous
  Country: US (occurrence: US)
  Receive Date: 20130219
  Receipt Date: 20130709
  Transmission Date: 20140515
  Serious: Yes (Other)
  Sender: FDA-Public Use
  Company Number: US-PFIZER INC-2013058358

PATIENT
  Age: 74 Year
  Sex: Female
  Weight: 58.5 kg

DRUGS (4)
  1. NORVASC [Suspect]
     Indication: HYPERTENSION
     Dosage: 10 MG, DAILY
     Route: 048
     Dates: start: 1990
  2. PREMARIN [Suspect]
     Indication: HORMONE THERAPY
     Dosage: 0.625 MG, DAILY
     Route: 048
     Dates: start: 1990
  3. XALATAN [Suspect]
     Indication: GLAUCOMA
     Dosage: ONE DROP IN EACH EYE DAILY
     Route: 047
     Dates: start: 2001, end: 20110909
  4. CLONIDINE [Concomitant]
     Indication: HYPERTENSION
     Dosage: TWO 0.2 MG TABLETS DAILY AT BED TIME
     Route: 048

REACTIONS (1)
  - Cataract [Recovered/Resolved]
